FAERS Safety Report 20161803 (Version 2)
Quarter: 2021Q4

REPORT INFORMATION
  Report Type: Spontaneous
  Country: LT (occurrence: LT)
  Receive Date: 20211208
  Receipt Date: 20211227
  Transmission Date: 20220303
  Serious: Yes (Other)
  Sender: FDA-Public Use
  Company Number: LT-SA-2021SA068028

PATIENT
  Age: 67 Year
  Sex: Male

DRUGS (13)
  1. AFLIBERCEPT [Suspect]
     Active Substance: AFLIBERCEPT
     Indication: Rectal cancer
     Dosage: UNK UNK, QCY
     Dates: start: 201803, end: 201902
  2. FLUOROURACIL [Suspect]
     Active Substance: FLUOROURACIL
     Indication: Rectal cancer
     Dosage: UNK
  3. OXALIPLATIN [Suspect]
     Active Substance: OXALIPLATIN
     Indication: Rectal cancer
     Dosage: PART OF FOLFOX4 REGIMEN
     Route: 065
     Dates: start: 201610, end: 201704
  4. OXALIPLATIN [Suspect]
     Active Substance: OXALIPLATIN
     Dosage: DOSE REDUCED WITH 25%
     Dates: start: 201907
  5. LEUCOVORIN CALCIUM [Suspect]
     Active Substance: LEUCOVORIN CALCIUM
     Indication: Rectal cancer
     Dosage: UNK
  6. CETUXIMAB [Concomitant]
     Active Substance: CETUXIMAB
     Indication: Rectal cancer
     Dosage: UNK
     Dates: start: 201610, end: 201704
  7. FLUOROURACIL\LEUCOVORIN [Concomitant]
     Active Substance: FLUOROURACIL\LEUCOVORIN
     Indication: Rectal cancer
  8. LONSURF [Concomitant]
     Active Substance: TIPIRACIL HYDROCHLORIDE\TRIFLURIDINE
     Indication: Rectal cancer
     Dosage: UNK
     Dates: start: 201902, end: 201907
  9. TEGAFUR [Concomitant]
     Active Substance: TEGAFUR
     Indication: Rectal cancer
  10. IRINOTECAN [Concomitant]
     Active Substance: IRINOTECAN
     Indication: Product used for unknown indication
     Dosage: UNK
  11. TIPIRACIL [Concomitant]
     Active Substance: TIPIRACIL
     Indication: Product used for unknown indication
     Dosage: UNK
  12. PENTOXIFYLLINE [Concomitant]
     Active Substance: PENTOXIFYLLINE
     Indication: Product used for unknown indication
     Dosage: UNK
  13. TRIFLURIDINE [Concomitant]
     Active Substance: TRIFLURIDINE
     Indication: Product used for unknown indication
     Dosage: UNK

REACTIONS (9)
  - Peripheral sensory neuropathy [Recovering/Resolving]
  - Malignant neoplasm progression [Unknown]
  - Rectal cancer [Unknown]
  - Restless legs syndrome [Recovering/Resolving]
  - Pruritus [Recovering/Resolving]
  - Sensory disturbance [Recovering/Resolving]
  - Dysaesthesia [Recovering/Resolving]
  - Areflexia [Recovering/Resolving]
  - Drug ineffective [Unknown]

NARRATIVE: CASE EVENT DATE: 20180301
